FAERS Safety Report 19058621 (Version 1)
Quarter: 2021Q1

REPORT INFORMATION
  Report Type: Report from Study
  Country: EG (occurrence: EG)
  Receive Date: 20210325
  Receipt Date: 20210325
  Transmission Date: 20210420
  Serious: Yes (Other)
  Sender: FDA-Public Use
  Company Number: NVSC2021EG063975

PATIENT
  Age: 57 Year
  Sex: Male

DRUGS (4)
  1. CARDURA [Concomitant]
     Active Substance: DOXAZOSIN MESYLATE
     Indication: PRODUCT USED FOR UNKNOWN INDICATION
     Dosage: 1 MG (1 TAB/ DAY FROM 3 YEARS AGO)
     Route: 065
  2. GLIVEC [Suspect]
     Active Substance: IMATINIB MESYLATE
     Indication: CHRONIC MYELOID LEUKAEMIA
     Dosage: 4 DF, QD 100 CAP (2009 OR 2010)
     Route: 048
  3. NORVASC [Concomitant]
     Active Substance: AMLODIPINE BESYLATE
     Indication: PRODUCT USED FOR UNKNOWN INDICATION
     Dosage: 1 DF, QD (FROM 3 YEARS AGO)
     Route: 065
  4. LANTUS [Concomitant]
     Active Substance: INSULIN GLARGINE
     Indication: PRODUCT USED FOR UNKNOWN INDICATION
     Dosage: UNK (10 UNITS / DAY FROM 5 MONTHS AGO TILL NOW)
     Route: 065

REACTIONS (6)
  - Hypertension [Recovering/Resolving]
  - Coronavirus infection [Recovered/Resolved]
  - Atrioventricular block [Not Recovered/Not Resolved]
  - Oedema peripheral [Not Recovered/Not Resolved]
  - Diabetes mellitus [Recovering/Resolving]
  - Product label issue [Unknown]

NARRATIVE: CASE EVENT DATE: 2011
